FAERS Safety Report 4301223-2 (Version None)
Quarter: 2004Q1

REPORT INFORMATION
  Report Type: 
  Country: None (occurrence: None)
  Receive Date: 20040218
  Receipt Date: 20031107
  Transmission Date: 20041129
  Serious: No
  Sender: FDA-Public Use
  Company Number: 2003-11-0419

PATIENT
  Age: 47 Year
  Sex: Female
  Weight: 67.1324 kg

DRUGS (4)
  1. PEG-INTRON [Suspect]
     Indication: HEPATITIS C
     Dosage: 800 MCG QW
     Route: 058
     Dates: start: 20020301, end: 20030201
  2. REBETOL [Suspect]
     Indication: HEPATITIS C
     Dosage: 1000 MG QD
     Route: 048
     Dates: start: 20020301, end: 20030201
  3. SYNTHROID [Concomitant]
  4. ENALAPRIL MALEATE [Concomitant]

REACTIONS (1)
  - INJECTION SITE MASS [None]
